FAERS Safety Report 21458051 (Version 3)
Quarter: 2023Q1

REPORT INFORMATION
  Report Type: Report from Study
  Country: CA (occurrence: CA)
  Receive Date: 20221014
  Receipt Date: 20230314
  Transmission Date: 20230418
  Serious: Yes (Other)
  Sender: FDA-Public Use
  Company Number: CA-BAUSCH-BL-2022-023196

PATIENT
  Sex: Male

DRUGS (4)
  1. CONTRAVE [Suspect]
     Active Substance: BUPROPION HYDROCHLORIDE\NALTREXONE HYDROCHLORIDE
     Indication: Weight control
     Dosage: 90/8 MG 1 TAB AM
     Route: 048
     Dates: start: 20220729, end: 20220803
  2. CONTRAVE [Suspect]
     Active Substance: BUPROPION HYDROCHLORIDE\NALTREXONE HYDROCHLORIDE
     Dosage: 90/8 MG 1 TAB AM 1 TAB PM
     Route: 048
     Dates: start: 20220804, end: 20220804
  3. CONTRAVE [Suspect]
     Active Substance: BUPROPION HYDROCHLORIDE\NALTREXONE HYDROCHLORIDE
     Dosage: 90/8 MG 1 TAB AM
     Route: 048
     Dates: start: 20220805, end: 2022
  4. CONTRAVE [Suspect]
     Active Substance: BUPROPION HYDROCHLORIDE\NALTREXONE HYDROCHLORIDE
     Dosage: 90/8 MG 2 TAB AM 2 TAB PM
     Route: 048
     Dates: start: 20221207

REACTIONS (14)
  - Hypertension [Recovered/Resolved]
  - Hyperacusis [Unknown]
  - Urine abnormality [Recovered/Resolved]
  - Lactose intolerance [Not Recovered/Not Resolved]
  - Condition aggravated [Not Recovered/Not Resolved]
  - Arthropathy [Not Recovered/Not Resolved]
  - Food aversion [Unknown]
  - Photophobia [Unknown]
  - Abdominal discomfort [Unknown]
  - Abdominal pain [Unknown]
  - Headache [Recovered/Resolved]
  - Irritability [Unknown]
  - Therapeutic response unexpected [Unknown]
  - Intentional product use issue [Unknown]

NARRATIVE: CASE EVENT DATE: 20220101
